FAERS Safety Report 8551898 (Version 3)
Quarter: 2014Q2

REPORT INFORMATION
  Report Type: Spontaneous
  Country: US (occurrence: US)
  Receive Date: 20120508
  Receipt Date: 20140501
  Transmission Date: 20141212
  Serious: Yes (Hospitalization)
  Sender: FDA-Public Use
  Company Number: US-BAYER-2012-043466

PATIENT
  Age: 29 Year
  Sex: Female
  Weight: 77.1 kg

DRUGS (13)
  1. BEYAZ [Suspect]
     Indication: OVARIAN CYST
     Dosage: UNK
     Dates: start: 201105, end: 201112
  2. BEYAZ [Suspect]
     Indication: OVARIAN CYST
     Dosage: UNK
     Dates: start: 201211
  3. XANAX [Concomitant]
     Dosage: 0.25 MG, FOUR A DAY
     Route: 048
     Dates: start: 20120202
  4. SINGULAIR [Concomitant]
     Dosage: 10 MG, UNK
     Route: 048
     Dates: start: 20120202
  5. FLEXERIL [Concomitant]
     Dosage: 20 MG, TWICE A DAY
     Route: 048
     Dates: start: 20120202
  6. PRILOSEC [Concomitant]
     Dosage: 20 MG, TWICE A DAY
     Route: 048
     Dates: start: 20120202
  7. ACYCLOVIR [ACICLOVIR] [Concomitant]
     Dosage: 400 MG, UNK
  8. LIDODERM [Concomitant]
     Dosage: 5 UNK, UNK
  9. METRONIDAZOLE [Concomitant]
     Dosage: 500 MG, UNK
     Dates: start: 20111108
  10. GUAIFENESIN DM [Concomitant]
     Dosage: UNK
     Dates: start: 20111114
  11. METHYLPREDNISOLONE [Concomitant]
     Dosage: 4 MG, UNK
     Dates: start: 20111114
  12. ERYTHROMYCIN [Concomitant]
     Dosage: 2 UNK, UNK
  13. PAROXETINE [Concomitant]
     Dosage: 40 MG, UNK
     Dates: start: 20120111

REACTIONS (7)
  - Deep vein thrombosis [None]
  - Pain [None]
  - Emotional distress [None]
  - Injury [None]
  - Scar [None]
  - Contusion [None]
  - Off label use [None]
